FAERS Safety Report 8920793 (Version 1)
Quarter: 2012Q4

REPORT INFORMATION
  Report Type: 
  Country: IT (occurrence: IT)
  Receive Date: 20121121
  Receipt Date: 20121121
  Transmission Date: 20130627
  Serious: Yes (Hospitalization)
  Sender: FDA-Public Use
  Company Number: IT-ASTRAZENECA-2012SE86119

PATIENT
  Age: 33082 Day
  Sex: Female

DRUGS (9)
  1. TENORMIN [Suspect]
     Route: 048
     Dates: start: 20120101, end: 20121103
  2. LANOXIN [Suspect]
     Route: 048
     Dates: start: 20120101, end: 20121104
  3. LANOXIN [Suspect]
     Route: 048
     Dates: start: 20121104
  4. ALLOPURINOL [Concomitant]
     Route: 048
  5. TAVOR (LORAZEPAM) [Concomitant]
     Route: 048
  6. CARDIRENE (ACETYLSALICYLATE D, L-LYSINE) [Concomitant]
     Route: 048
  7. DELAPRIDE ( DELAPRIL/INDAPAMIDE) [Concomitant]
     Dosage: 30 MG +2.5 MG TABLETS
     Route: 048
  8. ROCEFIN  (CEFTRIAXONE) [Concomitant]
     Indication: COUGH
     Dosage: 1G73.5 ML POWDER AND SOLVENT FOR SOLUTION FOR INJECTION FOR INTRAMUSCULAR USE
     Route: 030
     Dates: start: 20121101, end: 20121104
  9. LASIX (FUROSEMIDE) [Concomitant]
     Route: 048

REACTIONS (3)
  - Overdose [Unknown]
  - Atrial fibrillation [Recovering/Resolving]
  - Bradyarrhythmia [Recovering/Resolving]
